FAERS Safety Report 16483855 (Version 1)
Quarter: 2019Q2

REPORT INFORMATION
  Report Type: Spontaneous
  Country: TR (occurrence: TR)
  Receive Date: 20190627
  Receipt Date: 20190627
  Transmission Date: 20190711
  Serious: Yes (Other)
  Sender: FDA-Public Use
  Company Number: TR-TEVA-2019-TR-1068799

PATIENT
  Age: 31 Year
  Sex: Male

DRUGS (1)
  1. MODIODAL [Suspect]
     Active Substance: MODAFINIL
     Indication: SOMNOLENCE
     Route: 048
     Dates: start: 201903, end: 201906

REACTIONS (4)
  - Scratch [Recovering/Resolving]
  - Oral mucosal blistering [Recovering/Resolving]
  - Wound [Recovering/Resolving]
  - Prescription drug used without a prescription [Unknown]

NARRATIVE: CASE EVENT DATE: 201903
